FAERS Safety Report 7753663-7 (Version None)
Quarter: 2011Q3

REPORT INFORMATION
  Report Type: 
  Country: None (occurrence: None)
  Receive Date: 20110915
  Receipt Date: 20110915
  Transmission Date: 20111222
  Serious: Yes (Hospitalization, Disabling)
  Sender: FDA-Public Use
  Company Number: None

PATIENT
  Sex: Female
  Weight: 68.038 kg

DRUGS (2)
  1. FOSAMAX [Suspect]
     Indication: OSTEOPOROSIS
     Dates: start: 19950715, end: 20090715
  2. BONIVA [Concomitant]
     Indication: OSTEOPOROSIS
     Dates: start: 20090716, end: 20110803

REACTIONS (1)
  - FEMUR FRACTURE [None]
